FAERS Safety Report 15352759 (Version 3)
Quarter: 2022Q2

REPORT INFORMATION
  Report Type: Spontaneous
  Country: FR (occurrence: FR)
  Receive Date: 20180905
  Receipt Date: 20220531
  Transmission Date: 20220721
  Serious: Yes (Hospitalization)
  Sender: FDA-Public Use
  Company Number: PHHY2018FR087778

PATIENT
  Age: 47 Year
  Sex: Male
  Weight: 100 kg

DRUGS (10)
  1. TACROLIMUS [Suspect]
     Active Substance: TACROLIMUS
     Indication: Immunosuppression
     Dosage: 9 MG, QD
     Route: 048
     Dates: start: 20170630
  2. TACROLIMUS [Suspect]
     Active Substance: TACROLIMUS
     Dosage: 12 MG, QD
     Route: 048
     Dates: start: 20170704
  3. TACROLIMUS [Suspect]
     Active Substance: TACROLIMUS
     Dosage: 16 MG, QD
     Route: 048
     Dates: start: 20170706
  4. TACROLIMUS [Suspect]
     Active Substance: TACROLIMUS
     Dosage: 28 MG, QD
     Route: 048
     Dates: start: 20170709
  5. TACROLIMUS [Suspect]
     Active Substance: TACROLIMUS
     Dosage: 24 MG, QD
     Route: 048
     Dates: start: 20170803
  6. TACROLIMUS [Suspect]
     Active Substance: TACROLIMUS
     Dosage: 22 MG, QD
     Route: 048
     Dates: start: 20170805
  7. TACROLIMUS [Suspect]
     Active Substance: TACROLIMUS
     Dosage: 12 MG, QD
     Route: 048
     Dates: start: 20170928
  8. TACROLIMUS [Suspect]
     Active Substance: TACROLIMUS
     Dosage: 11 MG, QD
     Route: 048
     Dates: start: 20170930
  9. TACROLIMUS [Suspect]
     Active Substance: TACROLIMUS
     Dosage: 10 MG, QD
     Route: 048
     Dates: start: 20171123
  10. PROGRAF [Suspect]
     Active Substance: TACROLIMUS
     Indication: Immunosuppression
     Dosage: 8 MG, QD
     Route: 048
     Dates: start: 20170627

REACTIONS (2)
  - Urinary tract infection [Recovered/Resolved]
  - Clostridium test positive [Recovered/Resolved]

NARRATIVE: CASE EVENT DATE: 20170629
